FAERS Safety Report 8654639 (Version 2)
Quarter: 2013Q4

REPORT INFORMATION
  Report Type: Spontaneous
  Country: US (occurrence: US)
  Receive Date: 20120709
  Receipt Date: 20131205
  Transmission Date: 20140711
  Serious: Yes (Other)
  Sender: FDA-Public Use
  Company Number: US-PFIZER INC-2012161486

PATIENT
  Age: 45 Year
  Sex: Male

DRUGS (4)
  1. CHANTIX [Suspect]
     Indication: SMOKING CESSATION THERAPY
     Dosage: UNK
     Route: 048
     Dates: start: 20090101, end: 20100331
  2. CHANTIX [Suspect]
     Dosage: 0.5 MG, 2X/DAY
     Route: 048
     Dates: start: 20091124, end: 20091126
  3. CHANTIX [Suspect]
     Dosage: 1 MG, 2X/DAY
     Route: 048
     Dates: start: 20091127, end: 20091130
  4. LISINOPRIL [Concomitant]
     Dosage: 20 MG, 1X/DAY
     Dates: start: 20100202

REACTIONS (6)
  - Atrial fibrillation [Unknown]
  - Depression [Unknown]
  - Mood swings [Unknown]
  - Abnormal dreams [Unknown]
  - Anger [Unknown]
  - Injury [Unknown]
